FAERS Safety Report 8097428-8 (Version None)
Quarter: 2012Q1

REPORT INFORMATION
  Report Type: 
  Country: None (occurrence: None)
  Receive Date: 20120128
  Receipt Date: 20110620
  Transmission Date: 20120608
  Serious: No
  Sender: FDA-Public Use
  Company Number: US-ABBOTT-11P-163-0734566-00

PATIENT
  Sex: Female
  Weight: 56.75 kg

DRUGS (9)
  1. HUMIRA [Suspect]
     Indication: CROHN'S DISEASE
     Route: 058
     Dates: start: 20070101
  2. LORTAB [Concomitant]
     Indication: PAIN
     Route: 048
  3. VITAMIN B-12 [Concomitant]
     Indication: VITAMIN SUPPLEMENTATION
     Route: 050
  4. OMEPRAZOLE [Concomitant]
     Indication: PRODUCT USED FOR UNKNOWN INDICATION
     Route: 048
  5. MULTI-VITAMINS [Concomitant]
     Indication: VITAMIN SUPPLEMENTATION
  6. PREDNISONE TAB [Concomitant]
     Indication: CROHN'S DISEASE
     Dosage: ONCE DAILY AS NEEDED
     Route: 048
  7. TUMS WITH CALCIUM [Concomitant]
     Indication: MINERAL SUPPLEMENTATION
     Route: 048
  8. EPIPEN [Concomitant]
     Indication: ANAPHYLACTIC REACTION
  9. VALIUM [Concomitant]
     Indication: NEUROPATHY PERIPHERAL

REACTIONS (4)
  - SKIN SWELLING [None]
  - SKIN WARM [None]
  - VITAMIN SUPPLEMENTATION [None]
  - ERYTHEMA [None]
